FAERS Safety Report 14485618 (Version 1)
Quarter: 2018Q1

REPORT INFORMATION
  Report Type: Spontaneous
  Country: JP (occurrence: JP)
  Receive Date: 20180205
  Receipt Date: 20180205
  Transmission Date: 20180509
  Serious: Yes (Hospitalization)
  Sender: FDA-Public Use
  Company Number: JP-GLAXOSMITHKLINE-JP2018017683

PATIENT
  Age: 81 Year
  Sex: Female

DRUGS (1)
  1. LAMISIL [Suspect]
     Active Substance: TERBINAFINE HYDROCHLORIDE
     Indication: TINEA CAPITIS
     Dosage: 125 MG, QD
     Route: 065

REACTIONS (3)
  - Concomitant disease aggravated [Unknown]
  - Headache [Unknown]
  - Erythema [Unknown]
